FAERS Safety Report 5868067-1 (Version None)
Quarter: 2008Q3

REPORT INFORMATION
  Report Type: 
  Country: None (occurrence: None)
  Receive Date: 20080902
  Receipt Date: 20080321
  Transmission Date: 20090109
  Serious: No
  Sender: FDA-Public Use
  Company Number: US-ABBOTT-08P-163-0443701-00

PATIENT
  Sex: Male
  Weight: 31.78 kg

DRUGS (6)
  1. DEPAKOTE ER [Suspect]
     Indication: BIPOLAR DISORDER
     Route: 048
     Dates: start: 20080318
  2. DEPAKOTE ER [Suspect]
     Indication: ATTENTION DEFICIT/HYPERACTIVITY DISORDER
     Route: 048
     Dates: start: 20080314, end: 20080318
  3. DEPAKOTE ER [Suspect]
     Indication: SCHIZOPHRENIA
     Route: 048
     Dates: start: 20080310, end: 20080314
  4. DEPAKOTE ER [Suspect]
     Indication: OBSESSIVE-COMPULSIVE PERSONALITY DISORDER
     Route: 048
     Dates: start: 20080303, end: 20080310
  5. DEPAKOTE ER [Suspect]
  6. RISPERIDONE [Concomitant]
     Indication: MENTAL DISORDER
     Route: 048

REACTIONS (3)
  - ENURESIS [None]
  - HALLUCINATION, AUDITORY [None]
  - MEMORY IMPAIRMENT [None]
